FAERS Safety Report 5786121-X (Version None)
Quarter: 2008Q2

REPORT INFORMATION
  Report Type: 
  Country: None (occurrence: None)
  Receive Date: 20080624
  Receipt Date: 20080619
  Transmission Date: 20081010
  Serious: Yes (Hospitalization)
  Sender: FDA-Public Use
  Company Number: DE-ASTRAZENECA-2008AC01558

PATIENT
  Age: 59 Year
  Sex: Male
  Weight: 99 kg

DRUGS (8)
  1. QUETIAPINE FUMARATE [Suspect]
     Indication: IRRITABILITY
  2. QUETIAPINE FUMARATE [Suspect]
     Indication: MERYCISM
  3. QUETIAPINE FUMARATE [Suspect]
     Indication: INITIAL INSOMNIA
  4. VENLAFAXINE SR [Concomitant]
     Indication: MAJOR DEPRESSION
     Route: 048
  5. MIRTAZAPINE [Concomitant]
     Indication: MAJOR DEPRESSION
  6. LITHIUM CARBONATE [Concomitant]
     Indication: AFFECTIVE DISORDER
  7. VALPROIC ACID [Concomitant]
     Indication: AFFECTIVE DISORDER
  8. RISPERIDONE [Concomitant]
     Indication: DELIRIUM

REACTIONS (4)
  - AGITATION [None]
  - CONFUSIONAL STATE [None]
  - DISORIENTATION [None]
  - NOCTURNAL DYSPNOEA [None]
